FAERS Safety Report 14470997 (Version 1)
Quarter: 2018Q1

REPORT INFORMATION
  Report Type: Spontaneous
  Country: FR (occurrence: FR)
  Receive Date: 20180131
  Receipt Date: 20180131
  Transmission Date: 20180509
  Serious: Yes (Hospitalization)
  Sender: FDA-Public Use
  Company Number: FR-SA-2018SA020465

PATIENT
  Age: 67 Year
  Sex: Female

DRUGS (14)
  1. EPOETIN BETA [Suspect]
     Active Substance: ERYTHROPOIETIN
     Indication: PLASMA CELL MYELOMA
     Route: 065
     Dates: start: 20171215, end: 20171215
  2. BACTRIM [Suspect]
     Active Substance: SULFAMETHOXAZOLE\TRIMETHOPRIM
     Indication: ANTIBIOTIC PROPHYLAXIS
     Route: 065
     Dates: start: 20171215, end: 20171228
  3. ATARAX [Concomitant]
     Active Substance: HYDROXYZINE HYDROCHLORIDE
  4. VELCADE [Suspect]
     Active Substance: BORTEZOMIB
     Indication: PLASMA CELL MYELOMA
     Route: 065
     Dates: start: 20171215, end: 20171215
  5. ORACILLINE [Suspect]
     Active Substance: PENICILLIN V
     Indication: ANTIBIOTIC PROPHYLAXIS
     Route: 065
     Dates: start: 20171215, end: 20171228
  6. LOVENOX [Suspect]
     Active Substance: ENOXAPARIN SODIUM
     Route: 065
     Dates: start: 20180106
  7. HYDROCHLOROTHIAZIDE/LOSARTAN [Concomitant]
  8. LOVENOX [Suspect]
     Active Substance: ENOXAPARIN SODIUM
     Route: 065
     Dates: start: 20171215
  9. REVLIMID [Suspect]
     Active Substance: LENALIDOMIDE
     Indication: PLASMA CELL MYELOMA
     Route: 065
     Dates: start: 20171215, end: 20171215
  10. DEXAMETHASONE. [Suspect]
     Active Substance: DEXAMETHASONE
     Indication: PLASMA CELL MYELOMA
     Route: 065
     Dates: start: 20171215, end: 20171215
  11. ZELITREX [Suspect]
     Active Substance: VALACYCLOVIR HYDROCHLORIDE
     Indication: PROPHYLAXIS
     Route: 065
     Dates: start: 20171215, end: 20171228
  12. ZELITREX [Suspect]
     Active Substance: VALACYCLOVIR HYDROCHLORIDE
     Indication: PROPHYLAXIS
     Route: 065
     Dates: start: 20180105, end: 20180106
  13. GRANOCYTE [Suspect]
     Active Substance: LENOGRASTIM
     Indication: PLASMA CELL MYELOMA
     Route: 065
     Dates: start: 20171215, end: 20171215
  14. ACUPAN [Concomitant]
     Active Substance: NEFOPAM HYDROCHLORIDE

REACTIONS (5)
  - Hypersensitivity [Recovered/Resolved]
  - Oedema [Recovering/Resolving]
  - Rash [Recovering/Resolving]
  - Blood pressure decreased [Recovering/Resolving]
  - Vomiting [Recovering/Resolving]

NARRATIVE: CASE EVENT DATE: 20171225
